FAERS Safety Report 10729113 (Version 1)
Quarter: 2015Q1

REPORT INFORMATION
  Report Type: Spontaneous
  Country: FR (occurrence: FR)
  Receive Date: 20150122
  Receipt Date: 20150122
  Transmission Date: 20150721
  Serious: Yes (Death, Life-Threatening)
  Sender: FDA-Public Use
  Company Number: FR-009507513-1501FRA006968

PATIENT
  Age: 85 Year
  Sex: Female
  Weight: 65 kg

DRUGS (7)
  1. LEVOTHYROX [Concomitant]
     Active Substance: LEVOTHYROXINE
     Dosage: UNK
  2. THERALENE [Concomitant]
     Active Substance: TRIMEPRAZINE
     Dosage: UNK
  3. DAFALGAN CODEINE [Concomitant]
     Active Substance: ACETAMINOPHEN\CODEINE PHOSPHATE
     Dosage: UNK
  4. COOLMETEC [Concomitant]
     Active Substance: HYDROCHLOROTHIAZIDE\OLMESARTAN MEDOXOMIL
     Dosage: UNK
  5. TEMODAL [Suspect]
     Active Substance: TEMOZOLOMIDE
     Indication: METASTATIC MALIGNANT MELANOMA
     Dosage: UNK
     Route: 048
     Dates: start: 20140724, end: 20140729
  6. GLUCOPHAGE [Concomitant]
     Active Substance: METFORMIN HYDROCHLORIDE
     Dosage: UNK
  7. HYPERIUM [Concomitant]
     Active Substance: RILMENIDINE PHOSPHATE
     Dosage: UNK

REACTIONS (2)
  - Febrile bone marrow aplasia [Fatal]
  - Bacterial sepsis [Fatal]

NARRATIVE: CASE EVENT DATE: 20140820
